FAERS Safety Report 20996818 (Version 1)
Quarter: 2022Q2

REPORT INFORMATION
  Report Type: Spontaneous
  Country: FR (occurrence: FR)
  Receive Date: 20220623
  Receipt Date: 20220623
  Transmission Date: 20220721
  Serious: Yes (Other)
  Sender: FDA-Public Use
  Company Number: FR-AFSSAPS-BR20221402

PATIENT
  Age: 27 Year
  Sex: Female

DRUGS (2)
  1. OLANZAPINE [Suspect]
     Active Substance: OLANZAPINE
     Indication: Psychotic behaviour
     Dosage: 10 MILLIGRAM, ONCE A DAY
     Route: 048
     Dates: start: 20220409
  2. CYAMEMAZINE [Suspect]
     Active Substance: CYAMEMAZINE
     Indication: Psychotic behaviour
     Dosage: 50 MILLIGRAM, ONCE A DAY
     Route: 048
     Dates: start: 20220408, end: 20220428

REACTIONS (1)
  - Hyperprolactinaemia [Recovering/Resolving]

NARRATIVE: CASE EVENT DATE: 20220415
